FAERS Safety Report 6377513-9 (Version None)
Quarter: 2009Q3

REPORT INFORMATION
  Report Type: 
  Country: None (occurrence: None)
  Receive Date: 20090925
  Receipt Date: 20090914
  Transmission Date: 20100115
  Serious: Yes (Hospitalization)
  Sender: FDA-Public Use
  Company Number: IT-PFIZER INC-2009267912

PATIENT
  Age: 53 Year

DRUGS (3)
  1. CHAMPIX [Suspect]
     Indication: NICOTINE DEPENDENCE
     Dosage: 0.5 MG, 1X/DAY
     Route: 048
     Dates: start: 20080301, end: 20080304
  2. EUTIROX [Concomitant]
  3. LAROXYL [Concomitant]

REACTIONS (3)
  - HEADACHE [None]
  - MALAISE [None]
  - TACHYCARDIA PAROXYSMAL [None]
